FAERS Safety Report 16783331 (Version 1)
Quarter: 2019Q3

REPORT INFORMATION
  Report Type: Spontaneous
  Country: DE (occurrence: DE)
  Receive Date: 20190907
  Receipt Date: 20190907
  Transmission Date: 20191005
  Serious: Yes (Death, Other)
  Sender: FDA-Public Use
  Company Number: DE-DRREDDYS-GER/GER/19/0113966

PATIENT
  Age: 78 Year
  Sex: Male
  Weight: 75 kg

DRUGS (13)
  1. AMLODIPIN 10 MG [Concomitant]
     Active Substance: AMLODIPINE BESYLATE
     Indication: HYPERTENSION
     Dosage: 1X1?DAUERTHERAPIE (LONG TERM THERAPY)
     Route: 048
  2. OPIPRAMOL 100 MG [Suspect]
     Active Substance: OPIPRAMOL
     Indication: PRODUCT USED FOR UNKNOWN INDICATION
     Dosage: 1X1 ABENDS (1X1 IN THE EVENING)
     Dates: end: 20190625
  3. METODURA 200 MG [Concomitant]
     Indication: HYPERTENSION
     Dosage: 1X1 DAUERTHERAPIE (LONG-TERM THERAPY)
     Route: 048
  4. RAMILICH 10 MG [Concomitant]
     Indication: HYPERTENSION
     Dosage: 1X1 DAUERTHERAPIE (LONG TERM THERAPY)
     Route: 048
  5. FINASTERID 5 MG [Concomitant]
     Indication: BENIGN PROSTATIC HYPERPLASIA
     Dosage: 1X1?DAUERTHERAPIE (LONG TERM THERAPY)
     Route: 048
  6. ASPIRIN. [Concomitant]
     Active Substance: ASPIRIN
     Indication: PLATELET AGGREGATION INHIBITION
     Dosage: 1X1 DAUERTHERAPIE (LONG TERM THERAPY)
     Route: 048
  7. SPASMEX 45 MG [Concomitant]
     Indication: PRODUCT USED FOR UNKNOWN INDICATION
     Dosage: DAUERTHERAPIE (LONG TERM THERAPY)
     Route: 048
  8. ALFUZOSIN 10 MG [Concomitant]
     Active Substance: ALFUZOSIN
     Indication: BENIGN PROSTATIC HYPERPLASIA
     Dosage: 1X1?DAUERTHERAPIE (LONG TERM THERAPY)
     Route: 048
  9. SIMVASTATIN 40MG [Concomitant]
     Active Substance: SIMVASTATIN
     Indication: LIPIDS INCREASED
     Dosage: 1X1 DAUERTHERAPIE (LONG TERM THERAPY)
     Route: 048
  10. TORASEMID 10 MG [Concomitant]
     Active Substance: TORSEMIDE
     Indication: HYPERTENSION
     Dosage: 1X1  DAUERTHERAPIE (LONG TERM THERAPY)
     Route: 048
  11. MOXONIDINE 0.4 MG [Concomitant]
     Indication: HYPERTENSION
     Dosage: 1X1 DAUERTHERAPIE (LONG TERM THERAPY)
     Route: 048
  12. CITALOPRAM [Suspect]
     Active Substance: CITALOPRAM HYDROBROMIDE
     Indication: DEPRESSION
     Dosage: 1X1
     Route: 048
     Dates: start: 20190626, end: 20190701
  13. METODURA 200 MG [Concomitant]
     Indication: ARRHYTHMIA

REACTIONS (2)
  - Completed suicide [Fatal]
  - Hanging [Fatal]

NARRATIVE: CASE EVENT DATE: 20190701
